FAERS Safety Report 8677704 (Version 2)
Quarter: 2012Q4

REPORT INFORMATION
  Report Type: 
  Country: US (occurrence: US)
  Receive Date: 20120723
  Receipt Date: 20121023
  Transmission Date: 20130627
  Serious: No
  Sender: FDA-Public Use
  Company Number: US-ROXANE LABORATORIES, INC.-2012-RO-01496RO

PATIENT
  Age: 61 Year
  Sex: Female
  Weight: 48 kg

DRUGS (4)
  1. AZATHIOPRINE [Suspect]
     Indication: AUTOIMMUNE HEPATITIS
     Dosage: 50 mg
     Route: 048
     Dates: start: 20120202
  2. AZATHIOPRINE [Suspect]
     Dosage: 25 mg
     Route: 048
     Dates: start: 20120126, end: 20120201
  3. AZATHIOPRINE [Suspect]
     Dosage: 25 mg
     Route: 048
     Dates: start: 20120614, end: 20120802
  4. SYNTHROID [Concomitant]
     Indication: HYPERTHYROIDISM
     Dates: start: 2005

REACTIONS (4)
  - Alopecia [Not Recovered/Not Resolved]
  - Nausea [Recovered/Resolved]
  - Decreased appetite [Recovered/Resolved]
  - Fatigue [Recovered/Resolved]
